FAERS Safety Report 15262266 (Version 1)
Quarter: 2018Q3

REPORT INFORMATION
  Report Type: Spontaneous
  Country: US (occurrence: US)
  Receive Date: 20180720
  Receipt Date: 20180720
  Transmission Date: 20181010
  Serious: Yes (Other)
  Sender: FDA-Public Use
  Company Number: None

PATIENT
  Age: 67 Year
  Sex: Male

DRUGS (2)
  1. EYLEA [Concomitant]
     Active Substance: AFLIBERCEPT
     Dates: start: 20180702, end: 20180711
  2. EYLEA [Suspect]
     Active Substance: AFLIBERCEPT
     Indication: NEOVASCULAR AGE-RELATED MACULAR DEGENERATION
     Dosage: ?          OTHER FREQUENCY:EVERY 4 WEEKS;?
     Route: 047
     Dates: start: 20180702, end: 20180711

REACTIONS (2)
  - Eye pain [None]
  - Blindness [None]

NARRATIVE: CASE EVENT DATE: 20180706
